FAERS Safety Report 24684990 (Version 1)
Quarter: 2024Q4

REPORT INFORMATION
  Report Type: Spontaneous
  Country: US (occurrence: US)
  Receive Date: 20241202
  Receipt Date: 20241202
  Transmission Date: 20250115
  Serious: No
  Sender: BRISTOL-MYERS SQUIBB COMPANY
  Company Number: US-BRISTOL-MYERS SQUIBB COMPANY-2024-185572

PATIENT
  Age: 76 Year
  Sex: Male
  Weight: 64.41 kg

DRUGS (1)
  1. ORENCIA [Suspect]
     Active Substance: ABATACEPT
     Indication: Product used for unknown indication
     Dosage: DOSE : 750 MG;     FREQ : 750 MG EVERY 4 WEEKS
     Route: 042
     Dates: end: 202408

REACTIONS (1)
  - Treatment noncompliance [Unknown]
